FAERS Safety Report 21207665 (Version 1)
Quarter: 2022Q3

REPORT INFORMATION
  Report Type: Spontaneous
  Country: US (occurrence: US)
  Receive Date: 20220812
  Receipt Date: 20220812
  Transmission Date: 20221027
  Serious: No
  Sender: FDA-Public Use
  Company Number: US-SANOFI-01224126

PATIENT
  Sex: Male

DRUGS (2)
  1. DUPIXENT [Suspect]
     Active Substance: DUPILUMAB
     Indication: Eczema
     Dosage: 300 MG, QOW
     Dates: end: 20220713
  2. COVID-19 VACCINE NOS [Concomitant]
     Active Substance: COVID-19 VACCINE NOS
     Dosage: UNK

REACTIONS (7)
  - Illness [Unknown]
  - Nasopharyngitis [Unknown]
  - Infection [Unknown]
  - Dermatitis acneiform [Unknown]
  - Eczema [Unknown]
  - Drug ineffective [Unknown]
  - Product use issue [Unknown]
